FAERS Safety Report 4689788-2 (Version None)
Quarter: 2005Q2

REPORT INFORMATION
  Report Type: 
  Country: None (occurrence: None)
  Receive Date: 20050608
  Receipt Date: 20050407
  Transmission Date: 20051028
  Serious: No
  Sender: FDA-Public Use
  Company Number: 2005-BP-05709BP

PATIENT
  Age: 51 Year
  Sex: Female

DRUGS (7)
  1. SPIRIVA [Suspect]
     Indication: ASTHMA
     Dosage: 18 MCG (18 MCG), IH
     Route: 055
     Dates: start: 20050406
  2. SEREVENT [Concomitant]
  3. SINGULAIR(MONTELUKAST) [Concomitant]
  4. PRILOSEC [Concomitant]
  5. CLARITIN [Concomitant]
  6. THYROID TAB [Concomitant]
  7. ALBUTEROL [Concomitant]

REACTIONS (1)
  - ASTHMA [None]
